FAERS Safety Report 13827826 (Version 1)
Quarter: 2017Q3

REPORT INFORMATION
  Report Type: Spontaneous
  Country: GB (occurrence: GB)
  Receive Date: 20170803
  Receipt Date: 20170803
  Transmission Date: 20171127
  Serious: Yes (Disabling)
  Sender: FDA-Public Use
  Company Number: GB-CIPLA LTD.-2017GB13317

PATIENT

DRUGS (4)
  1. RIFINAH [Concomitant]
     Active Substance: ISONIAZID\RIFAMPIN
     Dosage: 300/150
     Route: 065
  2. ETHAMBUTOL [Suspect]
     Active Substance: ETHAMBUTOL HYDROCHLORIDE
     Dosage: 1.2 G, QD
     Route: 065
  3. LEVOFLOXACIN. [Suspect]
     Active Substance: LEVOFLOXACIN
     Indication: DISSEMINATED BACILLUS CALMETTE-GUERIN INFECTION
     Dosage: 500 MG, BID
     Route: 048
     Dates: start: 20170329, end: 20170626
  4. ONCOTICE [Concomitant]
     Active Substance: BACILLUS CALMETTE-GUERIN SUBSTRAIN TICE LIVE ANTIGEN
     Indication: BLADDER TRANSITIONAL CELL CARCINOMA
     Dosage: 12.5 MG, UNK
     Route: 043
     Dates: start: 20170126, end: 20170216

REACTIONS (2)
  - Pain in extremity [Recovering/Resolving]
  - Joint lock [Recovering/Resolving]
